FAERS Safety Report 9103309 (Version 2)
Quarter: 2013Q2

REPORT INFORMATION
  Report Type: Spontaneous
  Country: TR (occurrence: TR)
  Receive Date: 20130219
  Receipt Date: 20130520
  Transmission Date: 20140414
  Serious: Yes (Hospitalization, Disabling, Other)
  Sender: FDA-Public Use
  Company Number: TR-AMGEN-TURSP2013010851

PATIENT
  Age: 72 Year
  Sex: Female

DRUGS (2)
  1. ENBREL [Suspect]
     Indication: RHEUMATOID ARTHRITIS
     Dosage: 50 MG, WEEKLY
     Route: 058
     Dates: start: 20110523, end: 20130128
  2. COUMADINE [Concomitant]
     Indication: CARDIAC VALVE DISEASE
     Dosage: 5 MG, AT 1/4 TABLET FOR 5 DAYS AND 1/2 TABLET FOR 2 DAYS
     Route: 048
     Dates: start: 2007

REACTIONS (6)
  - Blood test abnormal [Not Recovered/Not Resolved]
  - Hemiplegia [Not Recovered/Not Resolved]
  - Asthenia [Not Recovered/Not Resolved]
  - Embolism [Unknown]
  - Paralysis [Not Recovered/Not Resolved]
  - Pain [Not Recovered/Not Resolved]
